FAERS Safety Report 8184924-8 (Version None)
Quarter: 2012Q1

REPORT INFORMATION
  Report Type: 
  Country: None (occurrence: None)
  Receive Date: 20120305
  Receipt Date: 20120228
  Transmission Date: 20120608
  Serious: Yes (Other)
  Sender: FDA-Public Use
  Company Number: US-GLAXOSMITHKLINE-A0967864A

PATIENT
  Age: 77 Year
  Sex: Female

DRUGS (1)
  1. PROMACTA [Suspect]
     Indication: IDIOPATHIC THROMBOCYTOPENIC PURPURA
     Dosage: 25MG THREE TIMES PER WEEK
     Route: 048
     Dates: start: 20111027

REACTIONS (3)
  - URINARY TRACT INFECTION [None]
  - OROPHARYNGEAL PAIN [None]
  - DYSPHONIA [None]
